FAERS Safety Report 10207698 (Version 1)
Quarter: 2014Q2

REPORT INFORMATION
  Report Type: Spontaneous
  Country: US (occurrence: US)
  Receive Date: 20140530
  Receipt Date: 20140530
  Transmission Date: 20141212
  Serious: No
  Sender: FDA-Public Use
  Company Number: US-GLAXOSMITHKLINE-A1055577A

PATIENT
  Age: 68 Year
  Sex: Female

DRUGS (5)
  1. VENTOLIN [Suspect]
     Indication: BRONCHITIS
     Dosage: 2PUFF FOUR TIMES PER DAY
     Route: 055
     Dates: start: 20140105
  2. HUMALOG [Concomitant]
  3. METFORMIN [Concomitant]
  4. LORAZEPAM [Concomitant]
  5. MONOPRIL [Concomitant]

REACTIONS (1)
  - Blood glucose increased [Unknown]
